FAERS Safety Report 26077710 (Version 1)
Quarter: 2025Q4

REPORT INFORMATION
  Report Type: Spontaneous
  Country: US (occurrence: US)
  Receive Date: 20251122
  Receipt Date: 20251122
  Transmission Date: 20260118
  Serious: No
  Sender: SUNOVION
  Company Number: US-SMPA-2025SPA014210

PATIENT
  Age: 81 Year
  Sex: Female
  Weight: 63.492 kg

DRUGS (11)
  1. GEMTESA [Suspect]
     Active Substance: VIBEGRON
     Indication: Micturition urgency
     Dosage: 75 MG
     Route: 048
  2. ZINC [Suspect]
     Active Substance: ZINC
     Indication: Supplementation therapy
     Dosage: 50 MG
  3. CALTRATE [Concomitant]
     Active Substance: CALCIUM CARBONATE
     Dosage: 1500 MG, BID
  4. BIOTIN [Concomitant]
     Active Substance: BIOTIN
     Indication: Alopecia
     Dosage: 5 MG
  5. VITAMIN D2 [Concomitant]
     Active Substance: ERGOCALCIFEROL
     Indication: Vitamin B complex deficiency
  6. FAMOTIDINE [Concomitant]
     Active Substance: FAMOTIDINE
     Indication: Reflux gastritis
     Dosage: UNK
  7. FLUTICASONE PROPIONATE [Concomitant]
     Active Substance: FLUTICASONE PROPIONATE
     Indication: Asthma
     Dosage: NASAL SPRAY
     Route: 045
  8. AZELASTINE HYDROCHLORIDE [Concomitant]
     Active Substance: AZELASTINE HYDROCHLORIDE
     Indication: Asthma
     Dosage: NASAL
     Route: 045
  9. AMBIEN [Concomitant]
     Active Substance: ZOLPIDEM TARTRATE
     Indication: Insomnia
  10. SINGULAIR [Concomitant]
     Active Substance: MONTELUKAST SODIUM
     Indication: Product used for unknown indication
     Dosage: TAKE THAT ONE AT ONE A NIGHT
  11. PROBIOTICS NOS [Concomitant]
     Active Substance: PROBIOTICS NOS
     Indication: Diverticulum intestinal

REACTIONS (7)
  - Headache [Unknown]
  - Nasopharyngitis [Unknown]
  - Nausea [Unknown]
  - Diarrhoea [Unknown]
  - Bursa injury [Unknown]
  - Bursitis [Unknown]
  - Ophthalmic migraine [Unknown]

NARRATIVE: CASE EVENT DATE: 20251001
